FAERS Safety Report 6580603-9 (Version None)
Quarter: 2010Q1

REPORT INFORMATION
  Report Type: 
  Country: None (occurrence: None)
  Receive Date: 20100203
  Receipt Date: 20100119
  Transmission Date: 20100710
  Serious: Yes (Death)
  Sender: FDA-Public Use
  Company Number: AE 2009-067

PATIENT
  Age: 83 Year
  Sex: Female
  Weight: 97.5234 kg

DRUGS (7)
  1. FAZACLO ODT [Suspect]
     Indication: DELUSION
     Dosage: 87.5 MG QHS PO
     Route: 048
     Dates: start: 20070503, end: 20090325
  2. FAZACLO ODT [Suspect]
     Indication: DEMENTIA
     Dosage: 87.5 MG QHS PO
     Route: 048
     Dates: start: 20070503, end: 20090325
  3. LORAZEPAM [Concomitant]
  4. PROVIGIL [Concomitant]
  5. LASIX [Concomitant]
  6. INSULIN [Concomitant]
  7. METFORMIN HCL [Concomitant]

REACTIONS (1)
  - DEATH [None]
